FAERS Safety Report 6198682-X (Version None)
Quarter: 2009Q2

REPORT INFORMATION
  Report Type: 
  Country: None (occurrence: None)
  Receive Date: 20090519
  Receipt Date: 20090519
  Transmission Date: 20091009
  Serious: No
  Sender: FDA-Public Use
  Company Number: None

PATIENT
  Age: 78 Year
  Sex: Female
  Weight: 54.8852 kg

DRUGS (4)
  1. ENALAPRIL MALEATE [Suspect]
     Indication: CARDIAC FAILURE CONGESTIVE
     Dosage: 1 P.O. QD
     Route: 048
     Dates: start: 20040101, end: 20090101
  2. COREG [Concomitant]
  3. DIGOXIN [Concomitant]
  4. ASTELIN [Concomitant]

REACTIONS (2)
  - PALPITATIONS [None]
  - SWELLING FACE [None]
